FAERS Safety Report 8949564 (Version 1)
Quarter: 2012Q4

REPORT INFORMATION
  Report Type: 
  Country: SK (occurrence: SK)
  Receive Date: 20121206
  Receipt Date: 20121206
  Transmission Date: 20130627
  Serious: Yes (Death)
  Sender: FDA-Public Use
  Company Number: SK-ELI_LILLY_AND_COMPANY-SK201211007666

PATIENT
  Sex: Female

DRUGS (3)
  1. FORSTEO [Suspect]
     Indication: OSTEOPOROSIS POSTMENOPAUSAL
     Dosage: 20 ug, qd
     Route: 058
     Dates: start: 20111025
  2. MELOXICAM [Concomitant]
     Indication: OSTEOPOROSIS
     Dosage: UNK, unknown
     Route: 065
  3. ALPHA D3 [Concomitant]
     Indication: OSTEOPOROSIS
     Dosage: UNK, unknown
     Route: 065

REACTIONS (1)
  - Death [Fatal]
